FAERS Safety Report 7406620-4 (Version None)
Quarter: 2011Q2

REPORT INFORMATION
  Report Type: 
  Country: None (occurrence: None)
  Receive Date: 20110406
  Receipt Date: 20110406
  Transmission Date: 20111010
  Serious: Yes (Hospitalization)
  Sender: FDA-Public Use
  Company Number: None

PATIENT
  Sex: Female
  Weight: 68.8 kg

DRUGS (2)
  1. AZACITIDINE [Suspect]
     Indication: ACUTE MYELOID LEUKAEMIA
     Dosage: 75MG/M2 QD IV
     Route: 042
  2. REVLIMID [Suspect]
     Dosage: 25 MG QD PO
     Route: 048

REACTIONS (2)
  - THROMBOCYTOPENIA [None]
  - ANAEMIA [None]
